FAERS Safety Report 6301642-9 (Version None)
Quarter: 2009Q3

REPORT INFORMATION
  Report Type: 
  Country: None (occurrence: None)
  Receive Date: 20090805
  Receipt Date: 20090722
  Transmission Date: 20100115
  Serious: Yes (Hospitalization)
  Sender: FDA-Public Use
  Company Number: 230001M09CHN

PATIENT
  Age: 57 Year
  Sex: Female

DRUGS (2)
  1. REBIF [Suspect]
     Indication: MULTIPLE SCLEROSIS
     Dosage: 22 MCG, 3 IN 1 WEEKS
     Dates: start: 20090201, end: 20090101
  2. HORMONE NOS (HORMONES AND RELATED AGENTS) [Concomitant]

REACTIONS (2)
  - APLASTIC ANAEMIA [None]
  - VAGINAL HAEMORRHAGE [None]
